FAERS Safety Report 9932268 (Version 1)
Quarter: 2014Q1

REPORT INFORMATION
  Report Type: Spontaneous
  Country: US (occurrence: None)
  Receive Date: 20140227
  Receipt Date: 20140227
  Transmission Date: 20141002
  Serious: Yes (Hospitalization)
  Sender: FDA-Public Use
  Company Number: None

PATIENT
  Age: 73 Year
  Sex: Male

DRUGS (13)
  1. VANCOMYCIN [Suspect]
     Indication: OSTEOMYELITIS
  2. SULFAMETHOXAZOLE/TRIMETHOPRIM [Suspect]
     Route: 048
  3. AMLODIPINE [Concomitant]
  4. ASPIRIN [Concomitant]
  5. ESCITALOPRAM [Concomitant]
  6. FAMOTIDINE [Concomitant]
  7. QUETIAPINE [Concomitant]
  8. SIMVASTATIN [Concomitant]
  9. LOSARTAN [Concomitant]
  10. OXYCODONE [Concomitant]
  11. PREGABALIN [Concomitant]
  12. ACETAMINOPHEN/CODEINE [Concomitant]
  13. ZINC OXIDE [Concomitant]

REACTIONS (4)
  - Drug level increased [None]
  - Blood potassium increased [None]
  - Blood creatinine increased [None]
  - Blood urea increased [None]
